FAERS Safety Report 4692518-1 (Version None)
Quarter: 2005Q3

REPORT INFORMATION
  Report Type: 
  Country: None (occurrence: None)
  Receive Date: 20050613
  Receipt Date: 20050331
  Transmission Date: 20060218
  Serious: No
  Sender: FDA-Public Use
  Company Number: 2005-00687

PATIENT
  Age: 64 Year
  Sex: Female

DRUGS (11)
  1. VELCADE [Suspect]
     Indication: MULTIPLE MYELOMA
     Dosage: 1.30 MG/M2, INTRAVENOUS
     Route: 042
     Dates: start: 20050307
  2. COUMADIN [Concomitant]
  3. ALLOPURINOL [Concomitant]
  4. MAXZIDE [Concomitant]
  5. CATAPRES-TTS-1 [Concomitant]
  6. LASIX [Concomitant]
  7. ACCUPRIL [Concomitant]
  8. POTASSIUM CHLORIDE [Concomitant]
  9. DARVOCET-N (PARACETAMOL, DEXTROPROPOXYPHENE NAPSILATE) [Concomitant]
  10. ESTROVEN [Concomitant]
  11. PROZAC [Concomitant]

REACTIONS (1)
  - PLATELET COUNT DECREASED [None]
